FAERS Safety Report 9518838 (Version 1)
Quarter: 2013Q3

REPORT INFORMATION
  Report Type: Spontaneous
  Country: US (occurrence: None)
  Receive Date: 20130910
  Receipt Date: 20130910
  Transmission Date: 20140515
  Serious: No
  Sender: FDA-Public Use
  Company Number: SYM-2013-10398

PATIENT
  Age: 63 Year
  Sex: Female

DRUGS (3)
  1. WELLBUTRIN SR [Suspect]
     Indication: PRODUCT USED FOR UNKNOWN INDICATION
     Dates: start: 201003
  2. ADVAIR [Suspect]
     Dates: start: 200901
  3. VENTOLIN [Suspect]
     Dates: start: 20090103

REACTIONS (1)
  - Investigation [None]
